FAERS Safety Report 20493902 (Version 1)
Quarter: 2022Q1

REPORT INFORMATION
  Report Type: Spontaneous
  Country: US (occurrence: US)
  Receive Date: 20220221
  Receipt Date: 20220221
  Transmission Date: 20220423
  Serious: Yes (Other)
  Sender: FDA-Public Use
  Company Number: US-NOVARTISPH-NVSC2022US034900

PATIENT
  Sex: Male

DRUGS (2)
  1. CARBOPLATIN [Suspect]
     Active Substance: CARBOPLATIN
     Indication: Brain neoplasm
     Dosage: UNK
     Route: 065
  2. VINCRISTINE [Suspect]
     Active Substance: VINCRISTINE
     Indication: Brain neoplasm
     Dosage: UNK
     Route: 065

REACTIONS (4)
  - Brain neoplasm [Unknown]
  - Malignant neoplasm progression [Unknown]
  - Poor feeding infant [Unknown]
  - Product use in unapproved indication [Unknown]
